FAERS Safety Report 15345558 (Version 1)
Quarter: 2018Q3

REPORT INFORMATION
  Report Type: Report from Study
  Country: None (occurrence: BR)
  Receive Date: 20180904
  Receipt Date: 20180904
  Transmission Date: 20181010
  Serious: Yes (Other)
  Sender: FDA-Public Use
  Company Number: BR-ABBVIE-18P-020-2473129-00

PATIENT
  Sex: Female
  Weight: 70 kg

DRUGS (6)
  1. ZETIA [Concomitant]
     Active Substance: EZETIMIBE
     Indication: BLOOD CHOLESTEROL INCREASED
     Dosage: ONGOING; FREQUENCY: AFTER COFFEE
     Route: 048
     Dates: start: 2008
  2. ASPIRINA [Concomitant]
     Active Substance: ASPIRIN
     Indication: THROMBOSIS
     Dosage: ONGOING; START DATE: SINCE SHE WAS 15 YEARS OLD
     Route: 048
  3. SYNTHROID [Suspect]
     Active Substance: LEVOTHYROXINE SODIUM
     Indication: HYPOTHYROIDISM
     Dosage: ONGOING; START DATE: SINCE SHE WAS 15 YEARS OLD
     Route: 048
  4. ESOMEPRAZOLE [Concomitant]
     Active Substance: ESOMEPRAZOLE
     Indication: DYSPEPSIA
  5. ESOMEPRAZOLE [Concomitant]
     Active Substance: ESOMEPRAZOLE
     Indication: PRODUCT USED FOR UNKNOWN INDICATION
     Dosage: ONGOING; START DATE: AFTER HER CANCER SURGERY IN 2008
     Route: 048
     Dates: start: 2008
  6. ROSUVASTATIN. [Concomitant]
     Active Substance: ROSUVASTATIN
     Indication: BLOOD CHOLESTEROL ABNORMAL
     Dosage: ONGOING
     Route: 048
     Dates: start: 2008

REACTIONS (3)
  - Hypoacusis [Unknown]
  - Blood cholesterol increased [Unknown]
  - Gastrointestinal carcinoma [Unknown]

NARRATIVE: CASE EVENT DATE: 2008
